FAERS Safety Report 8594670-4 (Version None)
Quarter: 2012Q3

REPORT INFORMATION
  Report Type: 
  Country: None (occurrence: None)
  Receive Date: 20120815
  Receipt Date: 20120809
  Transmission Date: 20120928
  Serious: Yes (Other)
  Sender: FDA-Public Use
  Company Number: US-PFIZER INC-2012195483

PATIENT
  Age: 59 Year
  Sex: Female
  Weight: 159 kg

DRUGS (6)
  1. LISINOPRIL [Concomitant]
     Indication: BLOOD PRESSURE ABNORMAL
     Dosage: 20 MG, DAILY
  2. FLEXERIL [Concomitant]
     Indication: MUSCLE SPASMS
     Dosage: 10 MG, AS NEEDED
     Route: 048
  3. NEURONTIN [Suspect]
     Indication: NEURALGIA
     Dosage: 300 MG, DAILY
     Dates: start: 20060101
  4. NEURONTIN [Suspect]
     Indication: BACK INJURY
     Dosage: 300 MG, 3X/DAY
     Dates: start: 20090701
  5. HYDROCHLOROTHIAZIDE [Concomitant]
     Indication: BLOOD PRESSURE ABNORMAL
     Dosage: 25 MG, DAILY
  6. CLONAZEPAM [Concomitant]
     Indication: MUSCLE SPASMS
     Dosage: 324 MG, AS NEEDED

REACTIONS (2)
  - NEURALGIA [None]
  - URTICARIA [None]
